FAERS Safety Report 7580407-4 (Version None)
Quarter: 2011Q2

REPORT INFORMATION
  Report Type: 
  Country: None (occurrence: None)
  Receive Date: 20110629
  Receipt Date: 20110509
  Transmission Date: 20111010
  Serious: No
  Sender: FDA-Public Use
  Company Number: US-ELI_LILLY_AND_COMPANY-US201104002003

PATIENT
  Sex: Female

DRUGS (8)
  1. SIMVASTATIN [Concomitant]
     Dosage: 20 MG, 3/W
  2. FISH OIL [Concomitant]
     Dosage: 1000 MG, QD
  3. NEURONTIN [Concomitant]
     Dosage: 3 DF, QD
  4. FORTEO [Suspect]
     Indication: OSTEOPOROSIS
     Dosage: 20 UG, QD
     Dates: start: 20110304
  5. ASPIRIN [Concomitant]
     Dosage: 82 MG, QD
  6. CALCIUM D [Concomitant]
     Dosage: 500 MG, BID
  7. LOTREL [Concomitant]
     Dosage: 1 DF, QD
  8. TRIAMTEREEN/HYDROCHLOOTTHIAZIDE [Concomitant]
     Dosage: 1 DF, QD

REACTIONS (1)
  - NO ADVERSE EVENT [None]
